FAERS Safety Report 6426558-9 (Version None)
Quarter: 2009Q4

REPORT INFORMATION
  Report Type: 
  Country: None (occurrence: None)
  Receive Date: 20091030
  Receipt Date: 20091023
  Transmission Date: 20100525
  Serious: Yes (Life-Threatening, Hospitalization)
  Sender: FDA-Public Use
  Company Number: 2009SP014728

PATIENT
  Age: 60 Year
  Sex: Male

DRUGS (12)
  1. TEMODAL [Suspect]
     Indication: GLIOBLASTOMA MULTIFORME
     Dosage: 75 MG/M2; PO, 150 MG/M2; PO, 200 MG/M2; PO
     Route: 048
     Dates: start: 20080115, end: 20080225
  2. TEMODAL [Suspect]
     Indication: GLIOBLASTOMA MULTIFORME
     Dosage: 75 MG/M2; PO, 150 MG/M2; PO, 200 MG/M2; PO
     Route: 048
     Dates: start: 20080324, end: 20080328
  3. TEMODAL [Suspect]
     Indication: GLIOBLASTOMA MULTIFORME
     Dosage: 75 MG/M2; PO, 150 MG/M2; PO, 200 MG/M2; PO
     Route: 048
     Dates: start: 20080519, end: 20090717
  4. MYSTAN [Concomitant]
  5. NASEA-OD [Concomitant]
  6. PREDONINE [Concomitant]
  7. ZANTAC [Concomitant]
  8. LIVALO [Concomitant]
  9. POSTERISAN FORTE [Concomitant]
  10. XYLOCAINE [Concomitant]
  11. NOVORAPID [Concomitant]
  12. TATHION [Concomitant]

REACTIONS (4)
  - ALTERED STATE OF CONSCIOUSNESS [None]
  - BLADDER CANCER [None]
  - LUNG DISORDER [None]
  - MENINGITIS CRYPTOCOCCAL [None]
